FAERS Safety Report 26054994 (Version 1)
Quarter: 2025Q4

REPORT INFORMATION
  Report Type: Spontaneous
  Country: PH (occurrence: PH)
  Receive Date: 20251117
  Receipt Date: 20251117
  Transmission Date: 20260118
  Serious: Yes (Death)
  Sender: PFIZER
  Company Number: PH-PFIZER INC-PV202500133251

PATIENT
  Age: 60 Year
  Sex: Female

DRUGS (1)
  1. BOSULIF [Suspect]
     Active Substance: BOSUTINIB MONOHYDRATE
     Indication: Chronic myeloid leukaemia
     Dosage: 500MG (5 X 100MG TABLETS)

REACTIONS (5)
  - Chronic myeloid leukaemia [Fatal]
  - Brain herniation [Fatal]
  - Subdural haematoma [Fatal]
  - Anaemia [Fatal]
  - Thrombocytosis [Fatal]
